FAERS Safety Report 8197780-9 (Version None)
Quarter: 2012Q1

REPORT INFORMATION
  Report Type: 
  Country: None (occurrence: None)
  Receive Date: 20120309
  Receipt Date: 20120227
  Transmission Date: 20120608
  Serious: Yes (Other)
  Sender: FDA-Public Use
  Company Number: BR-BRISTOL-MYERS SQUIBB COMPANY-15167182

PATIENT
  Age: 58 Year
  Sex: Male

DRUGS (2)
  1. SPRYCEL [Suspect]
     Indication: CHRONIC MYELOID LEUKAEMIA
     Dosage: INTERR + RESTART AUG09:40MG/D,INTERR-10 WEEKS,RESTART- 20MG/D(2 MO);INCREASED TO 20MG ALTER 40 MG/D
     Route: 048
     Dates: start: 20090701
  2. GLEEVEC [Suspect]
     Indication: CHRONIC MYELOID LEUKAEMIA
     Dosage: INTERRUPTED AND RESTARTED ON JUN09
     Dates: start: 20090401, end: 20090101

REACTIONS (2)
  - PANCREATITIS [None]
  - NEPHROTIC SYNDROME [None]
